FAERS Safety Report 24617385 (Version 2)
Quarter: 2024Q4

REPORT INFORMATION
  Report Type: Spontaneous
  Country: GR (occurrence: GR)
  Receive Date: 20241114
  Receipt Date: 20241201
  Transmission Date: 20250115
  Serious: Yes (Disabling)
  Sender: ORGANON
  Company Number: GR-ORGANON-O2401GRC001699

PATIENT
  Sex: Female

DRUGS (4)
  1. CELESTONE CHRONODOSE [Suspect]
     Active Substance: BETAMETHASONE ACETATE\BETAMETHASONE SODIUM PHOSPHATE
     Indication: Osteoarthritis
     Dosage: 1 VIAL IN EACH KNEE
     Route: 065
     Dates: start: 20240110
  2. CELESTONE CHRONODOSE [Suspect]
     Active Substance: BETAMETHASONE ACETATE\BETAMETHASONE SODIUM PHOSPHATE
     Indication: Osteoarthritis
     Dosage: 1 VIAL IN EACH KNEE
     Route: 065
  3. MANYPER [Concomitant]
     Indication: Hypertension
     Dosage: UNK
  4. HYPOLOC [Concomitant]
     Indication: Hypertension
     Dosage: UNK

REACTIONS (7)
  - Gait inability [Not Recovered/Not Resolved]
  - Pyrexia [Recovering/Resolving]
  - Muscular weakness [Recovering/Resolving]
  - Decreased appetite [Recovering/Resolving]
  - Drug ineffective [Unknown]
  - Expired product administered [Unknown]
  - Recalled product administered [Unknown]

NARRATIVE: CASE EVENT DATE: 20240101
